FAERS Safety Report 4292008-4 (Version None)
Quarter: 2004Q1

REPORT INFORMATION
  Report Type: 
  Country: None (occurrence: None)
  Receive Date: 20040210
  Receipt Date: 20040210
  Transmission Date: 20041129
  Serious: Yes (Hospitalization)
  Sender: FDA-Public Use
  Company Number: None

PATIENT
  Age: 18 Year
  Sex: Male
  Weight: 68.0396 kg

DRUGS (7)
  1. MIDAZOLAM HCL [Suspect]
     Indication: SEDATION
     Dosage: 4 MG ONE TIME INTRAVENOUS
     Route: 042
     Dates: start: 20040121, end: 20040121
  2. FENTANYL [Concomitant]
  3. PREVACID [Concomitant]
  4. NEXIUM [Concomitant]
  5. FOLIC ACID [Concomitant]
  6. PREDNISONE [Concomitant]
  7. METHOTREXATE [Concomitant]

REACTIONS (3)
  - CONVULSION [None]
  - DYSTONIA [None]
  - TREMOR [None]
